FAERS Safety Report 25748196 (Version 1)
Quarter: 2025Q3

REPORT INFORMATION
  Report Type: Report from Study
  Country: CO (occurrence: CO)
  Receive Date: 20250902
  Receipt Date: 20250902
  Transmission Date: 20251020
  Serious: Yes (Other)
  Sender: ABBVIE
  Company Number: CO-ABBVIE-6437863

PATIENT
  Age: 81 Year
  Sex: Female

DRUGS (1)
  1. VENCLEXTA [Suspect]
     Active Substance: VENETOCLAX
     Indication: Chronic lymphocytic leukaemia
     Dosage: FORM STRENGTH: 100 MG
     Route: 048
     Dates: start: 20250708, end: 20250824

REACTIONS (3)
  - Cerebrovascular accident [Not Recovered/Not Resolved]
  - Feeling hot [Unknown]
  - Facial asymmetry [Unknown]

NARRATIVE: CASE EVENT DATE: 20250801
